FAERS Safety Report 15389683 (Version 3)
Quarter: 2018Q4

REPORT INFORMATION
  Report Type: Spontaneous
  Country: JP (occurrence: JP)
  Receive Date: 20180917
  Receipt Date: 20181011
  Transmission Date: 20190204
  Serious: Yes (Other)
  Sender: FDA-Public Use
  Company Number: JP-BAUSCH-BL-2018-025542

PATIENT

DRUGS (2)
  1. VISUDYNE [Suspect]
     Active Substance: VERTEPORFIN
     Indication: OFF LABEL USE
  2. VISUDYNE [Suspect]
     Active Substance: VERTEPORFIN
     Indication: CHORIORETINOPATHY
     Dosage: ONE-THIRD AMOUNT DOSE
     Route: 042

REACTIONS (4)
  - Product use in unapproved indication [Unknown]
  - Drug effect incomplete [Unknown]
  - Chorioretinopathy [Unknown]
  - Intentional product use issue [Unknown]
